FAERS Safety Report 16111655 (Version 2)
Quarter: 2019Q2

REPORT INFORMATION
  Report Type: Spontaneous
  Country: ES (occurrence: ES)
  Receive Date: 20190325
  Receipt Date: 20190413
  Transmission Date: 20190711
  Serious: Yes (Life-Threatening, Other)
  Sender: FDA-Public Use
  Company Number: ES-009507513-1903ESP009917

PATIENT
  Sex: Female
  Weight: 130 kg

DRUGS (3)
  1. ESMERON [Suspect]
     Active Substance: ROCURONIUM BROMIDE
     Indication: NEUROMUSCULAR BLOCKADE
     Dosage: 150 MG IN TOTAL
     Route: 042
  2. BRIDION [Suspect]
     Active Substance: SUGAMMADEX
     Dosage: 2 MILLIGRAM/KILOGRAM
     Route: 042
  3. BRIDION [Suspect]
     Active Substance: SUGAMMADEX
     Indication: NEUROMUSCULAR BLOCKADE REVERSAL
     Dosage: DOSE LOWER THAN CORRESPONDING ONE
     Route: 042

REACTIONS (3)
  - Recurrence of neuromuscular blockade [Recovered/Resolved]
  - Respiratory depression [Recovered/Resolved]
  - Incorrect dose administered [Unknown]

NARRATIVE: CASE EVENT DATE: 20190312
